FAERS Safety Report 16425586 (Version 1)
Quarter: 2019Q2

REPORT INFORMATION
  Report Type: Spontaneous
  Country: US (occurrence: US)
  Receive Date: 20190613
  Receipt Date: 20190613
  Transmission Date: 20190711
  Serious: No
  Sender: FDA-Public Use
  Company Number: US-MYLANLABS-2019M1052084

PATIENT
  Sex: Female
  Weight: 100 kg

DRUGS (1)
  1. ESTRADIOL TRANSDERMAL SYSTEM [Suspect]
     Active Substance: ESTRADIOL
     Indication: MENOPAUSE
     Dosage: 0.075 MG/DAY
     Route: 062

REACTIONS (5)
  - Pruritus [Recovered/Resolved]
  - Dermatitis contact [Recovering/Resolving]
  - Hot flush [Recovering/Resolving]
  - Wrong technique in product usage process [Recovered/Resolved]
  - Product adhesion issue [Recovering/Resolving]
